FAERS Safety Report 9308352 (Version 1)
Quarter: 2013Q2

REPORT INFORMATION
  Report Type: Spontaneous
  Country: FR (occurrence: FR)
  Receive Date: 20130524
  Receipt Date: 20130524
  Transmission Date: 20140414
  Serious: Yes (Other)
  Sender: FDA-Public Use
  Company Number: FR-GLAXOSMITHKLINE-B0892657A

PATIENT
  Age: 91 Year
  Sex: Female

DRUGS (10)
  1. ARIXTRA [Suspect]
     Indication: DEEP VEIN THROMBOSIS
     Dosage: 7.5MG PER DAY
     Route: 058
     Dates: start: 20130117, end: 20130122
  2. BETNEVAL [Concomitant]
     Route: 061
     Dates: start: 20130120, end: 20130124
  3. ATACAND [Concomitant]
     Dosage: 8MG PER DAY
     Route: 048
  4. NEBIVOLOL [Concomitant]
     Dosage: 5MG PER DAY
     Route: 048
  5. LASILIX [Concomitant]
     Dosage: 40MG PER DAY
     Route: 048
     Dates: start: 20121219
  6. BETAHISTINE [Concomitant]
     Dosage: 8MG PER DAY
     Route: 048
  7. TRANSIPEG [Concomitant]
     Dosage: 2SAC PER DAY
     Route: 048
     Dates: start: 20121214
  8. DAFALGAN [Concomitant]
     Indication: PAIN
     Route: 048
  9. AERIUS [Concomitant]
     Dosage: 5MG TWICE PER DAY
     Route: 048
     Dates: start: 20130117, end: 20130121
  10. GALEN^S CERATE [Concomitant]
     Dates: start: 20130117, end: 20130124

REACTIONS (2)
  - Muscle haemorrhage [Recovering/Resolving]
  - Haemorrhagic anaemia [Recovered/Resolved]
